FAERS Safety Report 25362449 (Version 1)
Quarter: 2025Q2

REPORT INFORMATION
  Report Type: Spontaneous
  Country: US (occurrence: US)
  Receive Date: 20250527
  Receipt Date: 20250527
  Transmission Date: 20250716
  Serious: Yes (Life-Threatening, Hospitalization)
  Sender: MYLAN
  Company Number: US-MYLANLABS-2025M1042051

PATIENT
  Age: 29 Year
  Sex: Male

DRUGS (20)
  1. NOREPINEPHRINE [Suspect]
     Active Substance: NOREPINEPHRINE
     Indication: Hypotension
  2. NOREPINEPHRINE [Suspect]
     Active Substance: NOREPINEPHRINE
     Route: 065
  3. NOREPINEPHRINE [Suspect]
     Active Substance: NOREPINEPHRINE
     Route: 065
  4. NOREPINEPHRINE [Suspect]
     Active Substance: NOREPINEPHRINE
  5. HYDROCORTISONE [Suspect]
     Active Substance: HYDROCORTISONE
     Indication: Hypotension
  6. HYDROCORTISONE [Suspect]
     Active Substance: HYDROCORTISONE
     Route: 065
  7. HYDROCORTISONE [Suspect]
     Active Substance: HYDROCORTISONE
     Route: 065
  8. HYDROCORTISONE [Suspect]
     Active Substance: HYDROCORTISONE
  9. VASOPRESSIN [Suspect]
     Active Substance: VASOPRESSIN
     Indication: Hypotension
  10. VASOPRESSIN [Suspect]
     Active Substance: VASOPRESSIN
     Route: 065
  11. VASOPRESSIN [Suspect]
     Active Substance: VASOPRESSIN
     Route: 065
  12. VASOPRESSIN [Suspect]
     Active Substance: VASOPRESSIN
  13. METHYLENE BLUE [Suspect]
     Active Substance: METHYLENE BLUE
     Indication: Hypotension
  14. METHYLENE BLUE [Suspect]
     Active Substance: METHYLENE BLUE
     Route: 065
  15. METHYLENE BLUE [Suspect]
     Active Substance: METHYLENE BLUE
     Route: 065
  16. METHYLENE BLUE [Suspect]
     Active Substance: METHYLENE BLUE
  17. HYDROXOCOBALAMIN [Suspect]
     Active Substance: HYDROXOCOBALAMIN
     Indication: Hypotension
  18. HYDROXOCOBALAMIN [Suspect]
     Active Substance: HYDROXOCOBALAMIN
     Route: 065
  19. HYDROXOCOBALAMIN [Suspect]
     Active Substance: HYDROXOCOBALAMIN
     Route: 065
  20. HYDROXOCOBALAMIN [Suspect]
     Active Substance: HYDROXOCOBALAMIN

REACTIONS (2)
  - Drug ineffective [Unknown]
  - Off label use [Unknown]
